FAERS Safety Report 5850507-5 (Version None)
Quarter: 2008Q3

REPORT INFORMATION
  Report Type: 
  Country: None (occurrence: None)
  Receive Date: 20080819
  Receipt Date: 20080807
  Transmission Date: 20090109
  Serious: Yes (Other)
  Sender: FDA-Public Use
  Company Number: US-PFIZER INC-2008066928

PATIENT
  Age: 63 Year
  Sex: Female

DRUGS (3)
  1. XALATAN [Suspect]
  2. COSOPT [Concomitant]
  3. ALPHAGAN [Concomitant]

REACTIONS (2)
  - CATARACT OPERATION [None]
  - GLAUCOMA [None]
